FAERS Safety Report 7272131-2 (Version None)
Quarter: 2011Q1

REPORT INFORMATION
  Report Type: 
  Country: None (occurrence: None)
  Receive Date: 20110203
  Receipt Date: 20110124
  Transmission Date: 20110831
  Serious: Yes (Hospitalization, Other)
  Sender: FDA-Public Use
  Company Number: US-ELI_LILLY_AND_COMPANY-US201101004370

PATIENT
  Sex: Male

DRUGS (12)
  1. PACLITAXEL [Suspect]
     Indication: PANCREATIC CARCINOMA
     Dosage: 125 MG/M2, UNKNOWN
     Route: 042
     Dates: start: 20101012
  2. IMODIUM [Concomitant]
     Indication: DIARRHOEA
     Route: 048
     Dates: start: 20110111
  3. COMPAZINE [Concomitant]
     Indication: PROPHYLAXIS
     Route: 048
     Dates: start: 20101228
  4. NEUPOGEN [Concomitant]
     Indication: WHITE BLOOD CELL COUNT DECREASED
     Route: 058
     Dates: start: 20110111
  5. GEMCITABINE HYDROCHLORIDE [Suspect]
     Dosage: 1496 MG, UNKNOWN
     Route: 042
     Dates: start: 20110104
  6. GEMCITABINE HYDROCHLORIDE [Suspect]
     Indication: PANCREATIC CARCINOMA
     Dosage: 1000 MG/M2, UNKNOWN
     Route: 042
     Dates: start: 20101012
  7. COREG [Concomitant]
     Indication: HYPERTENSION
     Dosage: UNK, UNK
     Route: 048
     Dates: start: 20040101
  8. LISINOPRIL [Concomitant]
     Indication: HYPERTENSION
     Dosage: UNK, UNK
     Route: 048
     Dates: start: 20040101
  9. PERCOCET [Concomitant]
     Indication: ABDOMINAL PAIN
     Route: 048
     Dates: start: 20101101
  10. ASPIRIN [Concomitant]
     Indication: PROPHYLAXIS
     Dosage: UNK, UNK
     Route: 048
     Dates: start: 20040101
  11. PANTOPRAZOLE [Concomitant]
     Indication: GASTROOESOPHAGEAL REFLUX DISEASE
     Route: 048
     Dates: start: 20101101
  12. LOVASTATIN [Concomitant]
     Indication: HYPERCHOLESTEROLAEMIA
     Dosage: UNK, UNK
     Route: 048
     Dates: start: 20040101

REACTIONS (2)
  - DEHYDRATION [None]
  - HAEMATOCRIT DECREASED [None]
